FAERS Safety Report 10455027 (Version 1)
Quarter: 2014Q3

REPORT INFORMATION
  Report Type: Spontaneous
  Country: HR (occurrence: HR)
  Receive Date: 20140915
  Receipt Date: 20140915
  Transmission Date: 20150326
  Serious: Yes (Death, Hospitalization)
  Sender: FDA-Public Use
  Company Number: PHHY2014HR115844

PATIENT
  Age: 41 Year
  Sex: Male

DRUGS (16)
  1. OXYGEN. [Suspect]
     Active Substance: OXYGEN
  2. DEXAMETHASONE. [Concomitant]
     Active Substance: DEXAMETHASONE
  3. FUROSEMIDE. [Suspect]
     Active Substance: FUROSEMIDE
  4. ESOMEPRAZOLE [Concomitant]
     Active Substance: ESOMEPRAZOLE
     Indication: PROPHYLAXIS
  5. METOCLOPRAMIDE. [Concomitant]
     Active Substance: METOCLOPRAMIDE
  6. CEFAZOLIN [Concomitant]
     Active Substance: CEFAZOLIN
     Dosage: 1 DF, Q3H
  7. FENTANYL. [Suspect]
     Active Substance: FENTANYL
     Indication: ANAESTHESIA
  8. THIOPENTAL [Suspect]
     Active Substance: THIOPENTAL
     Indication: ANAESTHESIA
  9. SUCCINYLCHOLINE CHLORIDE [Suspect]
     Active Substance: SUCCINYLCHOLINE CHLORIDE
     Indication: ANAESTHESIA
  10. NITROGEN OXYDULATUM [Suspect]
     Active Substance: NITROUS OXIDE
  11. PANCURONIUM [Concomitant]
     Active Substance: PANCURONIUM
  12. DOPAMINE [Suspect]
     Active Substance: DOPAMINE\DOPAMINE HYDROCHLORIDE
  13. ISOFLURANE. [Suspect]
     Active Substance: ISOFLURANE
  14. CARBAMAZEPINE. [Concomitant]
     Active Substance: CARBAMAZEPINE
  15. SALINE [Concomitant]
     Active Substance: SODIUM CHLORIDE
     Dosage: 3 L, UNK
  16. MIDAZOLAM [Concomitant]
     Active Substance: MIDAZOLAM\MIDAZOLAM HYDROCHLORIDE

REACTIONS (30)
  - Hepatic enzyme increased [Unknown]
  - Pneumonia [Unknown]
  - Death [Fatal]
  - Pyrexia [Unknown]
  - Cardio-respiratory arrest [Unknown]
  - Anuria [Unknown]
  - Hyperkalaemia [Unknown]
  - Central nervous system lesion [Unknown]
  - Dyspnoea [Unknown]
  - Klebsiella infection [Unknown]
  - Multi-organ failure [Unknown]
  - Blood creatinine increased [Unknown]
  - Haemorrhage urinary tract [Unknown]
  - Hypertension [Unknown]
  - Cerebral haemorrhage [Unknown]
  - Hyponatraemia [Unknown]
  - Tachypnoea [Unknown]
  - Renal failure acute [Unknown]
  - Oliguria [Unknown]
  - Pleural effusion [Unknown]
  - Blood urea increased [Unknown]
  - Haematuria [Unknown]
  - Brain oedema [Unknown]
  - Escherichia infection [Unknown]
  - Inflammation [Unknown]
  - Nervous system disorder [Unknown]
  - Respiratory disorder [Unknown]
  - Hypoxia [Unknown]
  - Brain compression [Unknown]
  - Brain herniation [Unknown]
